FAERS Safety Report 10668623 (Version 1)
Quarter: 2014Q4

REPORT INFORMATION
  Report Type: Spontaneous
  Country: FR (occurrence: FR)
  Receive Date: 20141222
  Receipt Date: 20141222
  Transmission Date: 20150529
  Serious: Yes (Hospitalization, Other)
  Sender: FDA-Public Use
  Company Number: FR-ELI_LILLY_AND_COMPANY-FR201412005421

PATIENT
  Age: 84 Year
  Sex: Male

DRUGS (14)
  1. DEROXAT [Concomitant]
     Active Substance: PAROXETINE HYDROCHLORIDE
  2. NOVOMIX [Suspect]
     Active Substance: INSULIN ASPART
     Indication: PRODUCT USED FOR UNKNOWN INDICATION
     Dosage: UNK, EACH EVENING
     Route: 058
     Dates: end: 201302
  3. NOVOMIX [Suspect]
     Active Substance: INSULIN ASPART
     Dosage: 32 IU, EACH MORNING
     Route: 058
     Dates: start: 201302, end: 20130308
  4. COUMADINE [Concomitant]
     Active Substance: WARFARIN SODIUM
  5. LASILIX                            /00032601/ [Concomitant]
     Active Substance: FUROSEMIDE
  6. TENORMIN [Concomitant]
     Active Substance: ATENOLOL
  7. DIGOXINE [Concomitant]
     Active Substance: DIGOXIN
  8. CRESTOR [Concomitant]
     Active Substance: ROSUVASTATIN CALCIUM
  9. TRIATEC                            /00885601/ [Concomitant]
     Active Substance: RAMIPRIL
  10. UMULINE [Suspect]
     Active Substance: INSULIN HUMAN
     Indication: PRODUCT USED FOR UNKNOWN INDICATION
     Dosage: UNK, EACH MORNING
     Route: 058
     Dates: end: 201302
  11. PLAVIX [Concomitant]
     Active Substance: CLOPIDOGREL BISULFATE
  12. UMULINE [Suspect]
     Active Substance: INSULIN HUMAN
     Dosage: UNK UNK, EACH EVENING
     Route: 058
     Dates: start: 201302, end: 20130308
  13. DIFFU K [Concomitant]
     Active Substance: POTASSIUM CHLORIDE
  14. INEXIUM                            /01479302/ [Concomitant]
     Active Substance: ESOMEPRAZOLE MAGNESIUM

REACTIONS (3)
  - Hypoglycaemia [Unknown]
  - Diabetes mellitus inadequate control [Unknown]
  - Hypoglycaemia [Recovered/Resolved]

NARRATIVE: CASE EVENT DATE: 20130219
